FAERS Safety Report 20664379 (Version 1)
Quarter: 2022Q2

REPORT INFORMATION
  Report Type: Report from Study
  Country: US (occurrence: None)
  Receive Date: 20220401
  Receipt Date: 20220401
  Transmission Date: 20220721
  Serious: Yes (Hospitalization, Other)
  Sender: FDA-Public Use
  Company Number: 2022A126819

PATIENT
  Sex: Female

DRUGS (2)
  1. FASENRA [Suspect]
     Active Substance: BENRALIZUMAB
     Route: 058
  2. SYMBICORT [Suspect]
     Active Substance: BUDESONIDE\FORMOTEROL FUMARATE DIHYDRATE
     Route: 055

REACTIONS (8)
  - Drug hypersensitivity [Unknown]
  - Anaphylactic reaction [Unknown]
  - Chills [Unknown]
  - Dizziness [Unknown]
  - Cold sweat [Unknown]
  - Dyspnoea [Unknown]
  - Rash [Unknown]
  - Headache [Unknown]
